FAERS Safety Report 21747717 (Version 1)
Quarter: 2022Q4

REPORT INFORMATION
  Report Type: Spontaneous
  Country: CH (occurrence: ES)
  Receive Date: 20221219
  Receipt Date: 20221219
  Transmission Date: 20230112
  Serious: Yes (Other)
  Sender: FDA-Public Use
  Company Number: CH-OPKO PHARMACEUTICALS, LLC.-2022OPK00072

PATIENT
  Sex: Male

DRUGS (1)
  1. RAYALDEE [Suspect]
     Active Substance: CALCIFEDIOL
     Dosage: UNK MICROGRAM

REACTIONS (5)
  - Myelopathy [Unknown]
  - Hyperreflexia [Unknown]
  - Clumsiness [Unknown]
  - Pseudarthrosis [Unknown]
  - Kyphosis [Unknown]
